FAERS Safety Report 13711495 (Version 3)
Quarter: 2017Q3

REPORT INFORMATION
  Report Type: Spontaneous
  Country: CA (occurrence: CA)
  Receive Date: 20170703
  Receipt Date: 20170901
  Transmission Date: 20171127
  Serious: Yes (Hospitalization, Other)
  Sender: FDA-Public Use
  Company Number: CA-CELLTRION INC.-2017CA007885

PATIENT

DRUGS (3)
  1. INFLECTRA [Suspect]
     Active Substance: INFLIXIMAB-DYYB
     Indication: COLITIS ULCERATIVE
     Dosage: 400 MG, CYCLIC EVERY 0, 2, 6 WEEKS THEN EVERY 8 WEEKS
     Route: 042
     Dates: start: 20170322, end: 2017
  2. PREDNISONE. [Concomitant]
     Active Substance: PREDNISONE
     Dosage: 40 MG, DAILY TAPERING 5MG/WEEK
  3. MEZAVANT [Concomitant]
     Active Substance: MESALAMINE
     Dosage: 2 DF, BID
     Dates: start: 201608

REACTIONS (5)
  - Prostatitis [Recovering/Resolving]
  - Urinary tract infection [Recovering/Resolving]
  - Clostridium difficile colitis [Recovering/Resolving]
  - Urinary retention [Recovering/Resolving]
  - Clostridium difficile infection [Recovering/Resolving]

NARRATIVE: CASE EVENT DATE: 2017
